FAERS Safety Report 15376078 (Version 1)
Quarter: 2018Q3

REPORT INFORMATION
  Report Type: Spontaneous
  Country: US (occurrence: US)
  Receive Date: 20180912
  Receipt Date: 20180912
  Transmission Date: 20181010
  Serious: Yes (Hospitalization, Other)
  Sender: FDA-Public Use
  Company Number: US-SA-2018SA251273

PATIENT
  Age: 52 Year
  Sex: Male

DRUGS (1)
  1. KEVZARA [Suspect]
     Active Substance: SARILUMAB
     Indication: RHEUMATOID ARTHRITIS
     Dosage: 200 MG, QOW
     Route: 058
     Dates: start: 20180828, end: 20180828

REACTIONS (8)
  - Angioedema [Unknown]
  - Swelling [Recovering/Resolving]
  - Hypersensitivity [Recovering/Resolving]
  - Skin warm [Recovering/Resolving]
  - Throat tightness [Recovering/Resolving]
  - Flushing [Recovering/Resolving]
  - Myalgia [Recovering/Resolving]
  - Feeling abnormal [Recovering/Resolving]

NARRATIVE: CASE EVENT DATE: 20180828
